FAERS Safety Report 25015588 (Version 1)
Quarter: 2025Q1

REPORT INFORMATION
  Report Type: Spontaneous
  Country: GB (occurrence: GB)
  Receive Date: 20250227
  Receipt Date: 20250227
  Transmission Date: 20250408
  Serious: Yes (Other)
  Sender: ALKEM
  Company Number: None

PATIENT
  Age: 42 Year
  Sex: Male
  Weight: 85 kg

DRUGS (2)
  1. FINASTERIDE [Suspect]
     Active Substance: FINASTERIDE
     Indication: Product used for unknown indication
     Route: 065
     Dates: start: 20230901
  2. FINASTERIDE [Suspect]
     Active Substance: FINASTERIDE
     Route: 065

REACTIONS (1)
  - Haematospermia [Not Recovered/Not Resolved]

NARRATIVE: CASE EVENT DATE: 20240110
